FAERS Safety Report 11903911 (Version 1)
Quarter: 2016Q1

REPORT INFORMATION
  Report Type: Spontaneous
  Country: MY (occurrence: MY)
  Receive Date: 20160111
  Receipt Date: 20160111
  Transmission Date: 20160526
  Serious: Yes (Hospitalization)
  Sender: FDA-Public Use
  Company Number: MY-ALEMBIC PHARMACUETICALS LIMITED-2015SCAL000911

PATIENT
  Age: 45 Year
  Sex: Female

DRUGS (2)
  1. CELECOXIB. [Suspect]
     Active Substance: CELECOXIB
     Indication: NEURALGIA
     Dosage: 200 MG, UNK
  2. CELECOXIB. [Suspect]
     Active Substance: CELECOXIB
     Dosage: 200 MG (AFTER THE SECOND ATTACK)

REACTIONS (2)
  - Medication overuse headache [Recovering/Resolving]
  - Cluster headache [Recovering/Resolving]
